FAERS Safety Report 7792959-X (Version None)
Quarter: 2011Q4

REPORT INFORMATION
  Report Type: 
  Country: None (occurrence: None)
  Receive Date: 20111003
  Receipt Date: 20110926
  Transmission Date: 20120403
  Serious: Yes (Death, Other)
  Sender: FDA-Public Use
  Company Number: PHHY2011IN85243

PATIENT
  Age: 56 Year
  Sex: Female

DRUGS (2)
  1. ZOLEDRONIC ACID [Suspect]
     Indication: OSTEOPOROSIS
     Dosage: 4 MG, UNK
  2. LEVOTHYROXINE [Concomitant]

REACTIONS (17)
  - THROMBOTIC THROMBOCYTOPENIC PURPURA [None]
  - RENAL FAILURE [None]
  - CONFUSIONAL STATE [None]
  - HYPOCALCAEMIA [None]
  - DEPRESSED LEVEL OF CONSCIOUSNESS [None]
  - BLOOD COUNT ABNORMAL [None]
  - PALLOR [None]
  - SOMNOLENCE [None]
  - ECCHYMOSIS [None]
  - CARDIO-RESPIRATORY ARREST [None]
  - PYREXIA [None]
  - HAEMOLYTIC ANAEMIA [None]
  - ASTHENIA [None]
  - THROMBOCYTOPENIA [None]
  - PURPURA [None]
  - INCOHERENT [None]
  - BLOOD CREATININE INCREASED [None]
